FAERS Safety Report 23747929 (Version 1)
Quarter: 2024Q2

REPORT INFORMATION
  Report Type: Spontaneous
  Country: GB (occurrence: GB)
  Receive Date: 20240416
  Receipt Date: 20240416
  Transmission Date: 20240716
  Serious: Yes (Congenital Anomaly, Other)
  Sender: FDA-Public Use
  Company Number: None

PATIENT

DRUGS (10)
  1. LANSOPRAZOLE [Suspect]
     Active Substance: LANSOPRAZOLE
     Indication: Infected cyst
     Dosage: 250 MILLIGRAM, BID
     Dates: start: 20240329, end: 20240405
  2. CLARITHROMYCIN [Suspect]
     Active Substance: CLARITHROMYCIN
     Indication: Infected cyst
     Dosage: 250 MILLIGRAM, BID
     Dates: start: 20240329, end: 20240405
  3. AMOXICILLIN [Suspect]
     Active Substance: AMOXICILLIN
     Indication: Infected cyst
     Dosage: 250 MILLIGRAM, BID
     Dates: start: 20240329, end: 20240405
  4. GAVISCON [Concomitant]
     Active Substance: ALUMINUM HYDROXIDE\MAGNESIUM CARBONATE
  5. LEVETIRACETAM [Concomitant]
     Active Substance: LEVETIRACETAM
     Indication: Epilepsy
  6. OMEPRAZOLE [Concomitant]
     Active Substance: OMEPRAZOLE
  7. POTASSIUM CITRATE [Concomitant]
     Active Substance: POTASSIUM CITRATE
  8. SODIUM BENZOATE [Concomitant]
     Active Substance: SODIUM BENZOATE
  9. SODIUM BICARBONATE [Concomitant]
     Active Substance: SODIUM BICARBONATE
  10. ZONISAMIDE [Concomitant]
     Active Substance: ZONISAMIDE

REACTIONS (5)
  - Muscle twitching [Recovered/Resolved]
  - Dyskinesia [Recovered/Resolved]
  - Muscle spasms [Recovered/Resolved]
  - Insomnia [Recovered/Resolved]
  - Dyspnoea [Recovered/Resolved]

NARRATIVE: CASE EVENT DATE: 20240402
